FAERS Safety Report 8456554 (Version 2)
Quarter: 2012Q4

REPORT INFORMATION
  Report Type: Spontaneous
  Country: GB (occurrence: None)
  Receive Date: 20120302
  Receipt Date: 20120816
  Transmission Date: 20130627
  Serious: Yes (Other)
  Sender: FDA-Public Use
  Company Number: 2012AP000472

PATIENT
  Age: 58 Year
  Sex: Male

DRUGS (1)
  1. LATANOPROST [Suspect]
     Indication: GLAUCOMA
     Dosage: 1 GTT ; OPH ; QD
     Route: 047
     Dates: start: 20111121, end: 20120206

REACTIONS (1)
  - ERECTILE DYSFUNCTION [None]
